FAERS Safety Report 17653947 (Version 1)
Quarter: 2020Q2

REPORT INFORMATION
  Report Type: Spontaneous
  Country: ES (occurrence: ES)
  Receive Date: 20200410
  Receipt Date: 20200410
  Transmission Date: 20200713
  Serious: Yes (Life-Threatening, Hospitalization, Other)
  Sender: FDA-Public Use
  Company Number: ES-AUROBINDO-AUR-APL-2020-017883

PATIENT
  Age: 50 Year
  Sex: Male

DRUGS (5)
  1. QUETIAPINE. [Interacting]
     Active Substance: QUETIAPINE
     Indication: PRODUCT USED FOR UNKNOWN INDICATION
     Dosage: 100 MILLIGRAM, ONCE A DAY
     Route: 048
     Dates: start: 20200214, end: 20200302
  2. HALOPERIDOL. [Interacting]
     Active Substance: HALOPERIDOL
     Indication: WITHDRAWAL SYNDROME
     Dosage: UNK
     Route: 048
     Dates: start: 20200214, end: 20200304
  3. MIRTAZAPINE. [Suspect]
     Active Substance: MIRTAZAPINE
     Indication: PRODUCT USED FOR UNKNOWN INDICATION
     Dosage: 30 MILLIGRAM, ONCE A DAY
     Route: 048
     Dates: start: 20200220, end: 20200302
  4. METHADONE HYDROCHLORIDE. [Interacting]
     Active Substance: METHADONE HYDROCHLORIDE
     Indication: WITHDRAWAL SYNDROME
     Dosage: 10 MILLIGRAM, ONCE A DAY
     Route: 048
     Dates: start: 20200207, end: 20200302
  5. CLONIDINE HYDROCHLORIDE. [Interacting]
     Active Substance: CLONIDINE HYDROCHLORIDE
     Indication: WITHDRAWAL SYNDROME
     Dosage: UNK
     Route: 048
     Dates: start: 20200214, end: 20200304

REACTIONS (2)
  - Encephalopathy [Recovered/Resolved]
  - Coma [Recovered/Resolved]

NARRATIVE: CASE EVENT DATE: 20200224
